FAERS Safety Report 5551494-X (Version None)
Quarter: 2007Q4

REPORT INFORMATION
  Report Type: 
  Country: None (occurrence: None)
  Receive Date: 20071129
  Receipt Date: 20070424
  Transmission Date: 20080405
  Serious: Yes (Other)
  Sender: FDA-Public Use
  Company Number: US200702001642

PATIENT
  Age: 25 Year
  Sex: Female
  Weight: 145.1 kg

DRUGS (6)
  1. ZYPREXA [Suspect]
     Dosage: 10 MG
     Dates: start: 20021001, end: 20030401
  2. SEROQUAL          (QUETIAPINE FUMARATE) [Concomitant]
  3. RISPERDAL [Concomitant]
  4. CELEXA [Concomitant]
  5. EFFEXOR [Concomitant]
  6. HYDOROCHLOROTHIAZIDE                (HYDROCHLOROTHIAZIDE) [Concomitant]

REACTIONS (7)
  - ABORTION SPONTANEOUS [None]
  - DIABETES MELLITUS [None]
  - DIABETIC COMA [None]
  - DIABETIC KETOACIDOSIS [None]
  - HYPERGLYCAEMIA [None]
  - METABOLIC DISORDER [None]
  - PANCREATITIS [None]
